FAERS Safety Report 5355040-5 (Version None)
Quarter: 2007Q2

REPORT INFORMATION
  Report Type: 
  Country: None (occurrence: None)
  Receive Date: 20070521
  Receipt Date: 20070214
  Transmission Date: 20071010
  Serious: No
  Sender: FDA-Public Use
  Company Number: WAES 0611USA07003

PATIENT
  Age: 43 Year
  Sex: Female

DRUGS (6)
  1. JANUVIA [Suspect]
     Indication: DIABETES MELLITUS NON-INSULIN-DEPENDENT
     Dosage: 100 MG/DAILY/PO
     Route: 048
     Dates: start: 20061122
  2. LANTUS [Concomitant]
  3. ALPRAZOLAM [Concomitant]
  4. ATENOLOL [Concomitant]
  5. LISINOPRIL [Concomitant]
  6. SIMVASTATIN [Concomitant]

REACTIONS (5)
  - EYE SWELLING [None]
  - HEADACHE [None]
  - LIP SWELLING [None]
  - NASAL CONGESTION [None]
  - RHINORRHOEA [None]
